FAERS Safety Report 17923531 (Version 1)
Quarter: 2020Q2

REPORT INFORMATION
  Report Type: Spontaneous
  Country: US (occurrence: US)
  Receive Date: 20200622
  Receipt Date: 20200622
  Transmission Date: 20200714
  Serious: Yes (Life-Threatening, Hospitalization)
  Sender: FDA-Public Use
  Company Number: None

PATIENT
  Age: 21 Year
  Sex: Female
  Weight: 75.6 kg

DRUGS (6)
  1. MULTIVITAMIN [Concomitant]
     Active Substance: VITAMINS
  2. TOPAMAX [Suspect]
     Active Substance: TOPIRAMATE
     Indication: WEIGHT INCREASED
     Route: 048
     Dates: start: 20200401, end: 20200616
  3. GEODON [Concomitant]
     Active Substance: ZIPRASIDONE HYDROCHLORIDE\ZIPRASIDONE MESYLATE
  4. CYMBALTA [Concomitant]
     Active Substance: DULOXETINE HYDROCHLORIDE
  5. TOPAMAX [Suspect]
     Active Substance: TOPIRAMATE
     Indication: BINGE EATING
     Route: 048
     Dates: start: 20200401, end: 20200616
  6. L-METHYLFOLATE [Concomitant]
     Active Substance: LEVOMEFOLIC ACID

REACTIONS (4)
  - Personality change [None]
  - Suicidal ideation [None]
  - Condition aggravated [None]
  - Suicide attempt [None]
